FAERS Safety Report 24337370 (Version 2)
Quarter: 2025Q3

REPORT INFORMATION
  Report Type: Spontaneous
  Country: RU (occurrence: RU)
  Receive Date: 20240919
  Receipt Date: 20250909
  Transmission Date: 20251020
  Serious: No
  Sender: ROCHE
  Company Number: RU-ROCHE-3435243

PATIENT
  Sex: Female

DRUGS (1)
  1. TAMIFLU [Suspect]
     Active Substance: OSELTAMIVIR PHOSPHATE
     Indication: Influenza
     Route: 048

REACTIONS (3)
  - Maternal exposure timing unspecified [Unknown]
  - Vomiting [Recovered/Resolved]
  - Nausea [Recovered/Resolved]
